FAERS Safety Report 4544731-1 (Version None)
Quarter: 2004Q4

REPORT INFORMATION
  Report Type: 
  Country: None (occurrence: None)
  Receive Date: 20041230
  Receipt Date: 20041217
  Transmission Date: 20050328
  Serious: Yes (Other)
  Sender: FDA-Public Use
  Company Number: 2004116628

PATIENT
  Age: 34 Year
  Sex: Male

DRUGS (2)
  1. CELEBREX [Suspect]
     Indication: ILL-DEFINED DISORDER
     Dosage: ORAL
     Route: 048
     Dates: end: 20040401
  2. ROFECOXIB [Concomitant]

REACTIONS (5)
  - ARTERIAL DISORDER [None]
  - GANGRENE [None]
  - LIMB INJURY [None]
  - THROMBOSIS [None]
  - TOE AMPUTATION [None]
